FAERS Safety Report 6747742-0 (Version None)
Quarter: 2010Q2

REPORT INFORMATION
  Report Type: 
  Country: None (occurrence: None)
  Receive Date: 20100528
  Receipt Date: 20100514
  Transmission Date: 20101027
  Serious: Yes (Hospitalization, Other)
  Sender: FDA-Public Use
  Company Number: US-SANOFI-AVENTIS-2010SA029596

PATIENT
  Age: 79 Year
  Sex: Male
  Weight: 83.4 kg

DRUGS (6)
  1. PLAVIX [Suspect]
     Route: 065
  2. COUMADIN [Suspect]
     Route: 065
  3. ERBITUX [Suspect]
     Dosage: DAY 8, 15, 22, 29, 36
     Route: 042
     Dates: start: 20100427
  4. ERBITUX [Suspect]
     Route: 042
     Dates: start: 20100427, end: 20100427
  5. TAXOL [Suspect]
     Dosage: DAY 1,8, 15, 22,29, 36
     Route: 042
     Dates: start: 20100427
  6. CISPLATIN [Suspect]
     Dosage: DAY 1,8, 15, 22, 29, 36
     Route: 042
     Dates: start: 20100427

REACTIONS (7)
  - DEHYDRATION [None]
  - DIARRHOEA [None]
  - HAEMATOCHEZIA [None]
  - INTERNATIONAL NORMALISED RATIO INCREASED [None]
  - LEUKOPENIA [None]
  - NEUTROPHIL COUNT DECREASED [None]
  - STOMATITIS [None]
